FAERS Safety Report 19497198 (Version 2)
Quarter: 2022Q1

REPORT INFORMATION
  Report Type: Report from Study
  Country: BR (occurrence: BR)
  Receive Date: 20210706
  Receipt Date: 20220323
  Transmission Date: 20220424
  Serious: Yes (Other)
  Sender: FDA-Public Use
  Company Number: BR-MERCK HEALTHCARE KGAA-9247147

PATIENT
  Age: 72 Year
  Sex: Male

DRUGS (3)
  1. CETUXIMAB [Suspect]
     Active Substance: CETUXIMAB
     Indication: Lip and/or oral cavity cancer
     Dosage: UNK UNK, WEEKLY (1/W)
     Route: 042
     Dates: start: 20210603
  2. AVASTIN [Concomitant]
     Active Substance: BEVACIZUMAB
     Indication: Lip and/or oral cavity cancer
  3. ASPIRIN\DIHYDROXYALUMINUM AMINOACETATE ANHYDROUS\MAGNESIUM CARBONATE [Concomitant]
     Active Substance: ASPIRIN\DIHYDROXYALUMINUM AMINOACETATE ANHYDROUS\MAGNESIUM CARBONATE
     Indication: Product used for unknown indication

REACTIONS (3)
  - Paraesthesia [Unknown]
  - Macule [Unknown]
  - Off label use [Unknown]

NARRATIVE: CASE EVENT DATE: 20210603
